FAERS Safety Report 10231440 (Version 1)
Quarter: 2014Q2

REPORT INFORMATION
  Report Type: Spontaneous
  Country: GB (occurrence: GB)
  Receive Date: 20140611
  Receipt Date: 20140611
  Transmission Date: 20141212
  Serious: Yes (Hospitalization, Other)
  Sender: FDA-Public Use
  Company Number: GB-ACTAVISPR-2014-12834

PATIENT
  Age: 65 Year
  Sex: Female

DRUGS (6)
  1. TACROLIMUS (UNKNOWN) [Suspect]
     Indication: PRODUCT USED FOR UNKNOWN INDICATION
     Dosage: TARGET THROUGH LEVEL OF 5-10 NG/L
     Route: 065
  2. AZATHIOPRINE (UNKNOWN) [Suspect]
     Indication: PRODUCT USED FOR UNKNOWN INDICATION
     Dosage: 75 MG, DAILY
     Route: 065
  3. PREDNISOLONE (UNKNOWN) [Suspect]
     Indication: PRODUCT USED FOR UNKNOWN INDICATION
     Dosage: 10 MG, DAILY
     Route: 065
  4. MYCOPHENOLATE MOFETIL (UNKNOWN) [Suspect]
     Indication: PRODUCT USED FOR UNKNOWN INDICATION
     Dosage: UNKNOWN
     Route: 065
  5. OMEPRAZOLE [Concomitant]
     Indication: PRODUCT USED FOR UNKNOWN INDICATION
     Dosage: UNKNOWN
     Route: 065
  6. RISEDRONATE [Concomitant]
     Indication: PRODUCT USED FOR UNKNOWN INDICATION
     Dosage: UNKNOWN
     Route: 065

REACTIONS (7)
  - Infective aortitis [Recovered/Resolved]
  - Salmonella bacteraemia [Recovered/Resolved]
  - Aortic aneurysm [Recovered/Resolved]
  - Gastroenteritis salmonella [Recovered/Resolved]
  - Respiratory tract infection [Unknown]
  - Respiratory failure [Unknown]
  - Lymphopenia [Recovered/Resolved]
